FAERS Safety Report 23264799 (Version 1)
Quarter: 2023Q4

REPORT INFORMATION
  Report Type: Report from Study
  Country: CA (occurrence: CA)
  Receive Date: 20231206
  Receipt Date: 20231206
  Transmission Date: 20240110
  Serious: Yes (Other)
  Sender: FDA-Public Use
  Company Number: CA-ABBVIE-5521371

PATIENT
  Age: 67 Year
  Sex: Female

DRUGS (1)
  1. RINVOQ [Suspect]
     Active Substance: UPADACITINIB
     Indication: Psoriatic arthropathy
     Dosage: FORM STRENGTH 15 MILLIGRAM
     Route: 048
     Dates: start: 20221118

REACTIONS (13)
  - Spinal cord compression [Unknown]
  - Arthralgia [Unknown]
  - Stress [Unknown]
  - Anxiety [Unknown]
  - Musculoskeletal stiffness [Recovered/Resolved]
  - Myalgia [Unknown]
  - Onychoclasis [Unknown]
  - Psoriasis [Unknown]
  - Peripheral swelling [Unknown]
  - Skin discolouration [Unknown]
  - Feeling cold [Unknown]
  - Joint swelling [Unknown]
  - Hypoaesthesia [Unknown]

NARRATIVE: CASE EVENT DATE: 20231129
